FAERS Safety Report 19833805 (Version 1)
Quarter: 2021Q3

REPORT INFORMATION
  Report Type: Spontaneous
  Country: US (occurrence: US)
  Receive Date: 20210915
  Receipt Date: 20210915
  Transmission Date: 20211014
  Serious: No
  Sender: FDA-Public Use
  Company Number: US-BEH-2021135854

PATIENT
  Age: 74 Year
  Sex: Male

DRUGS (2)
  1. PRIVIGEN [Suspect]
     Active Substance: HUMAN IMMUNOGLOBULIN G
     Dosage: UNK, EVERY 4 MONTHS
     Route: 065
  2. PRIVIGEN [Suspect]
     Active Substance: HUMAN IMMUNOGLOBULIN G
     Dosage: UNK
     Route: 065
     Dates: start: 20210808, end: 20210808

REACTIONS (11)
  - Dehydration [Unknown]
  - Feeling cold [Unknown]
  - Nausea [Unknown]
  - Feeling abnormal [Unknown]
  - Anxiety [Unknown]
  - Abdominal pain [Unknown]
  - Apathy [Unknown]
  - Arthralgia [Unknown]
  - Fatigue [Unknown]
  - Drug interaction [Unknown]
  - Asthenia [Unknown]

NARRATIVE: CASE EVENT DATE: 202108
